FAERS Safety Report 8426235-9 (Version None)
Quarter: 2012Q2

REPORT INFORMATION
  Report Type: 
  Country: None (occurrence: None)
  Receive Date: 20120323
  Receipt Date: 20110420
  Transmission Date: 20120825
  Serious: Yes (Other)
  Sender: FDA-Public Use
  Company Number: 163-21880-11043176

PATIENT
  Age: 72 Year
  Sex: Male

DRUGS (5)
  1. REVLIMID [Suspect]
     Indication: MULTIPLE MYELOMA
     Dosage: 10 MG, DAILY X 21/28D, PO ; 25 MG, DAILY X 21D/28D, PO ; 10 MG, DAILY X 21D/28D, PO
     Route: 048
     Dates: start: 20091001
  2. REVLIMID [Suspect]
     Indication: MULTIPLE MYELOMA
     Dosage: 10 MG, DAILY X 21/28D, PO ; 25 MG, DAILY X 21D/28D, PO ; 10 MG, DAILY X 21D/28D, PO
     Route: 048
     Dates: start: 20091101
  3. REVLIMID [Suspect]
     Indication: MULTIPLE MYELOMA
     Dosage: 10 MG, DAILY X 21/28D, PO ; 25 MG, DAILY X 21D/28D, PO ; 10 MG, DAILY X 21D/28D, PO
     Route: 048
     Dates: start: 20091201
  4. REVLIMID [Suspect]
  5. ASPIRIN [Concomitant]

REACTIONS (1)
  - RASH [None]
